FAERS Safety Report 9011587 (Version 2)
Quarter: 2013Q1

REPORT INFORMATION
  Report Type: Report from Study
  Country: CA (occurrence: CA)
  Receive Date: 20130108
  Receipt Date: 20130130
  Transmission Date: 20140127
  Serious: Yes (Hospitalization)
  Sender: FDA-Public Use
  Company Number: CA-BAYER-2013-001054

PATIENT
  Age: 62 Year
  Sex: Female

DRUGS (7)
  1. BETASERON [Suspect]
     Indication: MULTIPLE SCLEROSIS
     Dosage: 0.250 MG, UNK
     Dates: start: 19990524
  2. MULTIVITAMIN [Concomitant]
  3. NUTRITIONAL SUPPLEMENT [Concomitant]
  4. SALAZOPYRIN [Concomitant]
  5. CELEBREX [Concomitant]
  6. OMEGA 3 [Concomitant]
  7. TYLENOL ARTHRITIS [Concomitant]

REACTIONS (1)
  - Hip arthroplasty [Recovered/Resolved]
